FAERS Safety Report 10332073 (Version 2)
Quarter: 2014Q3

REPORT INFORMATION
  Report Type: Spontaneous
  Country: DE (occurrence: DE)
  Receive Date: 20140722
  Receipt Date: 20140822
  Transmission Date: 20150326
  Serious: Yes (Other)
  Sender: FDA-Public Use
  Company Number: DE-RB PHARMACEUTICALS LIMITED-RB-69742-2014

PATIENT
  Sex: Male

DRUGS (2)
  1. SUBOXONE [Suspect]
     Active Substance: BUPRENORPHINE HYDROCHLORIDE\NALOXONE HYDROCHLORIDE
     Indication: PRODUCT USED FOR UNKNOWN INDICATION
     Dosage: UNK
     Route: 065
  2. DICLOFENAC [Concomitant]
     Active Substance: DICLOFENAC
     Indication: PAIN
     Dosage: UNK
     Route: 065

REACTIONS (4)
  - Drug withdrawal syndrome [Unknown]
  - Drug ineffective [Unknown]
  - Lower limb fracture [Unknown]
  - Product blister packaging issue [None]

NARRATIVE: CASE EVENT DATE: 201406
